FAERS Safety Report 5763453-2 (Version None)
Quarter: 2008Q2

REPORT INFORMATION
  Report Type: 
  Country: None (occurrence: None)
  Receive Date: 20080604
  Receipt Date: 20080604
  Transmission Date: 20081010
  Serious: No
  Sender: FDA-Public Use
  Company Number: None

PATIENT
  Sex: Male

DRUGS (1)
  1. TIGECYCLINE [Suspect]
     Indication: CELLULITIS
     Dosage: 50MG IV Q12H
     Route: 042
     Dates: start: 20080527, end: 20080603

REACTIONS (1)
  - URTICARIA [None]
